FAERS Safety Report 9812687 (Version 1)
Quarter: 2014Q1

REPORT INFORMATION
  Report Type: Spontaneous
  Country: DE (occurrence: DE)
  Receive Date: 20140113
  Receipt Date: 20140113
  Transmission Date: 20141002
  Serious: Yes (Death, Hospitalization)
  Sender: FDA-Public Use
  Company Number: DE-ASTRAZENECA-2014SE02124

PATIENT
  Age: 68 Year
  Sex: Male

DRUGS (4)
  1. VIMOVO [Suspect]
     Dosage: 500 MG/20 MG
     Route: 048
  2. XARELTO [Suspect]
     Route: 048
  3. TORASEMID [Concomitant]
  4. PRAVASTATIN [Concomitant]

REACTIONS (3)
  - Haemorrhage [Fatal]
  - Multi-organ failure [Fatal]
  - Fall [Fatal]
